FAERS Safety Report 4676484-0 (Version None)
Quarter: 2005Q2

REPORT INFORMATION
  Report Type: 
  Country: None (occurrence: None)
  Receive Date: 20050525
  Receipt Date: 20050512
  Transmission Date: 20051028
  Serious: Yes (Other)
  Sender: FDA-Public Use
  Company Number: 230007M05CAN

PATIENT
  Age: 43 Year
  Sex: Male
  Weight: 66.8 kg

DRUGS (5)
  1. REBIF [Suspect]
     Indication: SECONDARY PROGRESSIVE MULTIPLE SCLEROSIS
     Dosage: SUBCUTANEOUS
     Route: 058
     Dates: end: 20000501
  2. PLACEBO (PLACEBO) [Suspect]
     Dates: start: 19941101, end: 19971101
  3. AMITRIPTYLINE [Concomitant]
  4. BACLOFEN [Concomitant]
  5. OXYBUTYNIN [Concomitant]

REACTIONS (9)
  - ANAEMIA [None]
  - DRUG INEFFECTIVE [None]
  - HEADACHE [None]
  - MICTURITION URGENCY [None]
  - MUSCLE SPASTICITY [None]
  - NOCTURIA [None]
  - POLLAKIURIA [None]
  - RENAL CELL CARCINOMA STAGE UNSPECIFIED [None]
  - WEIGHT DECREASED [None]
